FAERS Safety Report 6918182-6 (Version None)
Quarter: 2010Q3

REPORT INFORMATION
  Report Type: 
  Country: None (occurrence: None)
  Receive Date: 20100806
  Receipt Date: 20090710
  Transmission Date: 20110219
  Serious: Yes (Death)
  Sender: FDA-Public Use
  Company Number: APP201000261

PATIENT
  Sex: Male

DRUGS (1)
  1. HEPARIN SODIUM INJECTION [Suspect]
     Indication: PULMONARY EMBOLISM
     Dates: start: 20070701

REACTIONS (3)
  - ADVERSE REACTION [None]
  - PAIN [None]
  - PRODUCT CONTAMINATION [None]
